FAERS Safety Report 4918236-X (Version None)
Quarter: 2006Q1

REPORT INFORMATION
  Report Type: 
  Country: None (occurrence: None)
  Receive Date: 20060215
  Receipt Date: 20060209
  Transmission Date: 20060701
  Serious: Yes (Life-Threatening, Hospitalization)
  Sender: FDA-Public Use
  Company Number: 2005-135820-NL

PATIENT
  Age: 53 Year
  Sex: Female

DRUGS (7)
  1. MIRTAZAPINE [Suspect]
     Dosage: DF/30 MG QD
  2. HYDROCHLOROTHIAZIDE [Concomitant]
  3. ACCURETIC [Concomitant]
  4. AMLODIPINE [Concomitant]
  5. SOMNOL TAB [Concomitant]
  6. ESTROGENS CONJUGATED [Concomitant]
  7. SERTRALINE [Concomitant]

REACTIONS (6)
  - CEREBROVASCULAR DISORDER [None]
  - FALL [None]
  - FATIGUE [None]
  - ISCHAEMIA [None]
  - LIMB DISCOMFORT [None]
  - PARALYSIS [None]
